FAERS Safety Report 4680360-7 (Version None)
Quarter: 2005Q2

REPORT INFORMATION
  Report Type: 
  Country: None (occurrence: None)
  Receive Date: 20050601
  Receipt Date: 20050520
  Transmission Date: 20051028
  Serious: Yes (Hospitalization)
  Sender: FDA-Public Use
  Company Number: MK200505-0275-1

PATIENT
  Age: 52 Year
  Sex: Male

DRUGS (1)
  1. CONRAY [Suspect]
     Indication: COMPUTERISED TOMOGRAM ABDOMEN
     Dosage: 150 ML, ONE TIME, IV
     Route: 042
     Dates: start: 20050516, end: 20050516

REACTIONS (4)
  - BRADYCARDIA [None]
  - BRADYPNOEA [None]
  - BRONCHOSPASM [None]
  - LOSS OF CONSCIOUSNESS [None]
